FAERS Safety Report 8059454-4 (Version None)
Quarter: 2012Q1

REPORT INFORMATION
  Report Type: 
  Country: None (occurrence: None)
  Receive Date: 20120119
  Receipt Date: 20120119
  Transmission Date: 20120608
  Serious: Yes (Other)
  Sender: FDA-Public Use
  Company Number: None

PATIENT
  Age: 60 Year
  Sex: Female

DRUGS (1)
  1. GEODON [Suspect]
     Indication: BIPOLAR I DISORDER
     Dosage: GEODON 40MG 1 PO BID
     Route: 048
     Dates: start: 20110518, end: 20110527

REACTIONS (3)
  - RASH [None]
  - SWELLING FACE [None]
  - SWELLING [None]
